FAERS Safety Report 5491096-7 (Version None)
Quarter: 2007Q4

REPORT INFORMATION
  Report Type: 
  Country: None (occurrence: None)
  Receive Date: 20071019
  Receipt Date: 20071010
  Transmission Date: 20080405
  Serious: Yes (Other)
  Sender: FDA-Public Use
  Company Number: US-PFIZER INC-2007046210

PATIENT
  Sex: Male
  Weight: 91 kg

DRUGS (4)
  1. BEXTRA [Suspect]
     Indication: PAIN IN EXTREMITY
  2. BEXTRA [Suspect]
  3. BEXTRA [Suspect]
     Indication: ARTHRALGIA
  4. BEXTRA [Suspect]
     Indication: PLANTAR FASCIITIS

REACTIONS (1)
  - STEVENS-JOHNSON SYNDROME [None]
